FAERS Safety Report 10044669 (Version 3)
Quarter: 2014Q2

REPORT INFORMATION
  Report Type: Report from Study
  Country: DE (occurrence: DE)
  Receive Date: 20140328
  Receipt Date: 20140505
  Transmission Date: 20141212
  Serious: Yes (Hospitalization, Other)
  Sender: FDA-Public Use
  Company Number: DE-PFIZER INC-2014079875

PATIENT
  Age: 69 Year
  Sex: Female
  Weight: 97 kg

DRUGS (5)
  1. TOFACITINIB CITRATE [Suspect]
     Indication: RHEUMATOID ARTHRITIS
     Dosage: 10 MG, 2X/DAY
     Route: 048
     Dates: start: 20101214, end: 20140304
  2. METOPROLOL [Concomitant]
     Dosage: UNK
     Dates: start: 20041007
  3. ENABETA COMP [Concomitant]
     Dosage: UNK
     Dates: start: 20100301
  4. L-THYROXIN [Concomitant]
     Dosage: UNK
     Dates: start: 19890102
  5. ALLOPURINOL [Concomitant]
     Dosage: UNK
     Dates: start: 20130613

REACTIONS (2)
  - Hypertension [Recovered/Resolved]
  - Sinus tachycardia [Recovered/Resolved]
